FAERS Safety Report 12160098 (Version 2)
Quarter: 2016Q1

REPORT INFORMATION
  Report Type: Spontaneous
  Country: FR (occurrence: FR)
  Receive Date: 20160308
  Receipt Date: 20160323
  Transmission Date: 20160526
  Serious: Yes (Other)
  Sender: FDA-Public Use
  Company Number: FR-PFIZER INC-2016132631

PATIENT
  Age: 33 Year
  Sex: Male

DRUGS (5)
  1. LIORESAL [Concomitant]
     Active Substance: BACLOFEN
     Dosage: 10 MG, UNK
  2. NOCERTONE [Concomitant]
     Active Substance: OXETORONE
     Dosage: 60 MG, UNK
  3. NEURONTIN [Suspect]
     Active Substance: GABAPENTIN
     Indication: FIBROMYALGIA
     Dosage: 1200 MG, 3X/DAY
     Dates: start: 2006
  4. LYRICA [Suspect]
     Active Substance: PREGABALIN
     Indication: FIBROMYALGIA
     Dosage: 300 MG, 2X/DAY
  5. NEURONTIN [Suspect]
     Active Substance: GABAPENTIN
     Dosage: 1200 MG, 3X/DAY

REACTIONS (11)
  - Mental disorder [Recovered/Resolved]
  - Heat stroke [Unknown]
  - Paraesthesia [Unknown]
  - Skin discolouration [Unknown]
  - Acne [Unknown]
  - Multiple organ dysfunction syndrome [Unknown]
  - Skin lesion [Unknown]
  - Skin burning sensation [Unknown]
  - Chest discomfort [Unknown]
  - Headache [Unknown]
  - Night sweats [Unknown]

NARRATIVE: CASE EVENT DATE: 20150101
